FAERS Safety Report 6953941 (Version 3)
Quarter: 2013Q3

REPORT INFORMATION
  Report Type: Spontaneous
  Country: US (occurrence: US)
  Receive Date: 20090327
  Receipt Date: 20130805
  Transmission Date: 20140515
  Serious: Yes (Other)
  Sender: FDA-Public Use
  Company Number: US-BIOGENIDEC-2009BI008371

PATIENT
  Age: 50 Year
  Sex: Female

DRUGS (3)
  1. TYSABRI [Suspect]
     Indication: MULTIPLE SCLEROSIS
     Route: 042
     Dates: start: 20071018, end: 20080918
  2. NEURONTIN [Concomitant]
     Indication: NEUROPATHY PERIPHERAL
     Dates: start: 1986
  3. NEURONTIN [Concomitant]
     Indication: RESTLESS LEGS SYNDROME
     Dates: start: 1986

REACTIONS (14)
  - Drug ineffective [Unknown]
  - Convulsion [Recovered/Resolved]
  - Neuralgia [Unknown]
  - Gait disturbance [Unknown]
  - Multiple sclerosis relapse [Not Recovered/Not Resolved]
  - Fall [Recovered/Resolved]
  - Ankle fracture [Recovered/Resolved]
  - Ligament sprain [Recovered/Resolved]
  - Back injury [Recovered/Resolved]
  - Skull fracture [Recovered/Resolved]
  - Head injury [Recovered/Resolved]
  - Electroencephalogram abnormal [Unknown]
  - Pain [Unknown]
  - Local swelling [Unknown]
